FAERS Safety Report 25592498 (Version 1)
Quarter: 2025Q3

REPORT INFORMATION
  Report Type: Report from Study
  Country: EU (occurrence: EU)
  Receive Date: 20250722
  Receipt Date: 20250722
  Transmission Date: 20251021
  Serious: Yes (Other)
  Sender: MERCK SHARP & DOHME LLC
  Company Number: EU-009507513-2305308

PATIENT
  Sex: Female

DRUGS (4)
  1. SOTATERCEPT [Suspect]
     Active Substance: SOTATERCEPT
     Dates: start: 202504
  2. SOTATERCEPT [Suspect]
     Active Substance: SOTATERCEPT
  3. SOTATERCEPT [Suspect]
     Active Substance: SOTATERCEPT
  4. SOTATERCEPT [Suspect]
     Active Substance: SOTATERCEPT

REACTIONS (2)
  - Gastrointestinal haemorrhage [Unknown]
  - Haemoglobin decreased [Unknown]
